FAERS Safety Report 4595881-5 (Version None)
Quarter: 2005Q1

REPORT INFORMATION
  Report Type: 
  Country: None (occurrence: None)
  Receive Date: 20050224
  Receipt Date: 20050208
  Transmission Date: 20050727
  Serious: Yes (Disabling)
  Sender: FDA-Public Use
  Company Number: GBS050216612

PATIENT
  Age: 12 Year
  Sex: Male
  Weight: 37 kg

DRUGS (2)
  1. STRATTERA [Suspect]
     Indication: TOURETTE'S DISORDER
     Dosage: 10 MG DAY
     Dates: start: 20040916
  2. RISPERIDONE [Concomitant]

REACTIONS (2)
  - DIZZINESS [None]
  - PALPITATIONS [None]
